FAERS Safety Report 23450537 (Version 1)
Quarter: 2024Q1

REPORT INFORMATION
  Report Type: Spontaneous
  Country: US (occurrence: None)
  Receive Date: 20240126
  Receipt Date: 20240126
  Transmission Date: 20240409
  Serious: No
  Sender: FDA-Public Use
  Company Number: None

PATIENT
  Age: 83 Year
  Sex: Female
  Weight: 60.78 kg

DRUGS (1)
  1. ACTEMRA ACTPEN [Suspect]
     Active Substance: TOCILIZUMAB
     Indication: Rheumatoid arthritis
     Dosage: ?INJECT 162MG SUBCUTANEOUSLY ONCE A WEEK AS DIRECTED.
     Route: 058
     Dates: start: 202306

REACTIONS (2)
  - Sensitivity to weather change [None]
  - Cough [None]
